FAERS Safety Report 9515430 (Version 2)
Quarter: 2014Q1

REPORT INFORMATION
  Report Type: Report from Study
  Country: SG (occurrence: SG)
  Receive Date: 20130911
  Receipt Date: 20140325
  Transmission Date: 20141002
  Serious: Yes (Hospitalization, Other)
  Sender: FDA-Public Use
  Company Number: PHHY2013SG099080

PATIENT
  Age: 75 Year
  Sex: Male

DRUGS (1)
  1. GLIVEC [Suspect]
     Indication: CHRONIC MYELOID LEUKAEMIA
     Dosage: 400 MG, PER DAY
     Dates: start: 20050124

REACTIONS (4)
  - Fall [Not Recovered/Not Resolved]
  - Eye infection [Not Recovered/Not Resolved]
  - Deafness [Not Recovered/Not Resolved]
  - Vision blurred [Not Recovered/Not Resolved]
